FAERS Safety Report 16093733 (Version 1)
Quarter: 2019Q1

REPORT INFORMATION
  Report Type: Spontaneous
  Country: AU (occurrence: AU)
  Receive Date: 20190320
  Receipt Date: 20190320
  Transmission Date: 20190418
  Serious: Yes (Other)
  Sender: FDA-Public Use
  Company Number: AU-ACCORD-113464

PATIENT
  Age: 68 Year
  Sex: Male

DRUGS (11)
  1. TACROLIMUS. [Suspect]
     Active Substance: TACROLIMUS
     Indication: IMMUNOSUPPRESSION
  2. DARBEPOETIN ALFA [Concomitant]
     Active Substance: DARBEPOETIN ALFA
  3. METOPROLOL. [Concomitant]
     Active Substance: METOPROLOL
  4. METHOTREXATE/METHOTREXATE SODIUM [Suspect]
     Active Substance: METHOTREXATE\METHOTREXATE SODIUM
     Indication: RHEUMATOID ARTHRITIS
  5. MYCOPHENOLIC ACID. [Suspect]
     Active Substance: MYCOPHENOLIC ACID
     Indication: IMMUNOSUPPRESSION
  6. LEFLUNOMIDE. [Suspect]
     Active Substance: LEFLUNOMIDE
     Indication: IMMUNOSUPPRESSION
  7. WARFARIN [Concomitant]
     Active Substance: WARFARIN
  8. ATORVASTATIN [Concomitant]
     Active Substance: ATORVASTATIN
  9. PYRIMETHAMINE/PYRIMETHAMINE BITARTRATE [Concomitant]
     Active Substance: PYRIMETHAMINE
  10. IRBESARTAN. [Concomitant]
     Active Substance: IRBESARTAN
  11. PREDNISONE. [Suspect]
     Active Substance: PREDNISONE
     Indication: IMMUNOSUPPRESSION

REACTIONS (11)
  - Colitis [Unknown]
  - Gastrointestinal perforation [Unknown]
  - Incisional hernia [None]
  - Hypertension [None]
  - Cryptitis [None]
  - Enterocutaneous fistula [None]
  - Granuloma [None]
  - Postoperative wound complication [None]
  - Adverse event [Unknown]
  - Abscess intestinal [None]
  - Gastrointestinal ulcer [Unknown]
